FAERS Safety Report 15660882 (Version 3)
Quarter: 2018Q4

REPORT INFORMATION
  Report Type: Report from Study
  Country: AU (occurrence: AU)
  Receive Date: 20181127
  Receipt Date: 20181207
  Transmission Date: 20190205
  Serious: Yes (Life-Threatening, Hospitalization)
  Sender: FDA-Public Use
  Company Number: AU-EMD SERONO-E2B_90064874

PATIENT
  Age: 57 Year
  Sex: Male
  Weight: 62 kg

DRUGS (9)
  1. AVELUMAB [Suspect]
     Active Substance: AVELUMAB
     Indication: OROPHARYNGEAL SQUAMOUS CELL CARCINOMA
     Dosage: 600 MG, CYCLIC, DAY 1 OF LEAD IN PHASE, DAYS 8, 25, AND 39 OF CRT PHASE; EVERY 2 WEEKS DURING MAINTE
     Route: 042
     Dates: start: 20180710
  2. AVELUMAB [Suspect]
     Active Substance: AVELUMAB
     Dosage: 620 MG, DAY 1 OF LEAD IN PHASE, DAYS 8, 25, AND 39 OF CRT PHASE; EVERY 2 WEEKS DURING MAINTENANCE PH
     Dates: start: 20181113
  3. CISPLATIN. [Suspect]
     Active Substance: CISPLATIN
     Indication: OROPHARYNGEAL SQUAMOUS CELL CARCINOMA
     Dosage: 180 MG, CYCLIC (DAYS 1, 22, AND 43 OF CRT PHASE)
     Route: 042
     Dates: start: 20180717, end: 20180717
  4. CISPLATIN. [Suspect]
     Active Substance: CISPLATIN
     Dosage: 180 MG, CYCLIC (DAYS 1, 22, AND 43 OF CRT PHASE)
     Route: 042
     Dates: start: 20180807
  5. NILSTAT [NYSTATIN] [Concomitant]
     Indication: CANDIDA INFECTION
     Dosage: UNK, AS NEEDED
     Route: 048
     Dates: start: 20181018
  6. SODIUM BICARBONATE. [Concomitant]
     Active Substance: SODIUM BICARBONATE
     Indication: MUCOSAL INFLAMMATION
     Dosage: UNK, AS NEEDED
     Route: 048
     Dates: start: 20180824
  7. SALINE [SODIUM CHLORIDE] [Concomitant]
     Active Substance: SODIUM CHLORIDE
     Indication: SECRETION DISCHARGE
     Dosage: 910 MG IN 10ML, AS NEEDED
     Route: 055
     Dates: start: 20181113
  8. ORDINE [MORPHINE HYDROCHLORIDE] [Concomitant]
     Indication: PAIN
     Dosage: 1 MG, DAILY ENTERAL
     Dates: start: 20180824
  9. PANADOL [Concomitant]
     Active Substance: ACETAMINOPHEN
     Indication: PAIN
     Dosage: 1000 MG, AS NEEDED (ENTERAL)
     Dates: start: 20180619

REACTIONS (4)
  - Respiratory tract oedema [Recovered/Resolved with Sequelae]
  - Infection [Recovered/Resolved with Sequelae]
  - Necrosis [Recovered/Resolved with Sequelae]
  - Respiratory distress [Recovered/Resolved with Sequelae]

NARRATIVE: CASE EVENT DATE: 20181121
